FAERS Safety Report 19758500 (Version 3)
Quarter: 2021Q4

REPORT INFORMATION
  Report Type: Report from Study
  Country: PH (occurrence: PH)
  Receive Date: 20210828
  Receipt Date: 20211005
  Transmission Date: 20220304
  Serious: Yes (Death, Other)
  Sender: FDA-Public Use
  Company Number: NVSC2021PH195062

PATIENT
  Age: 59 Year
  Sex: Male

DRUGS (1)
  1. VOTRIENT [Suspect]
     Active Substance: PAZOPANIB HYDROCHLORIDE
     Indication: Renal cell carcinoma
     Dosage: 2 DF, QD (1 HOUR PRIOR TO BREAKFAST)
     Route: 065
     Dates: start: 20200531, end: 202102

REACTIONS (4)
  - Death [Fatal]
  - Seizure [Unknown]
  - Dyspnoea [Unknown]
  - Headache [Unknown]

NARRATIVE: CASE EVENT DATE: 20210529
